FAERS Safety Report 6129157-1 (Version None)
Quarter: 2009Q1

REPORT INFORMATION
  Report Type: 
  Country: None (occurrence: None)
  Receive Date: 20090320
  Receipt Date: 20090309
  Transmission Date: 20090719
  Serious: Yes (Hospitalization)
  Sender: FDA-Public Use
  Company Number: 2009AP001027

PATIENT
  Age: 38 Year
  Sex: Male

DRUGS (4)
  1. AMLODIPINE BESILATE (AMLODIPINE BESILATE)630 MG [Suspect]
     Dosage: 630 MG
  2. ZOPICLONE (ZOPICLONE) [Concomitant]
     Dosage: 300 MG
  3. CITALOPRAM HYDROBROMIDE [Suspect]
  4. ACETAMINOPHEN [Suspect]

REACTIONS (10)
  - BLOOD PRESSURE IMMEASURABLE [None]
  - CARDIAC FAILURE [None]
  - CIRCULATORY COLLAPSE [None]
  - COMA [None]
  - DILATATION VENTRICULAR [None]
  - EJECTION FRACTION DECREASED [None]
  - LACTIC ACIDOSIS [None]
  - MULTIPLE DRUG OVERDOSE [None]
  - PNEUMONIA [None]
  - PULSE ABSENT [None]
